FAERS Safety Report 19469346 (Version 1)
Quarter: 2021Q2

REPORT INFORMATION
  Report Type: Spontaneous
  Country: FR (occurrence: FR)
  Receive Date: 20210628
  Receipt Date: 20210628
  Transmission Date: 20210717
  Serious: Yes (Hospitalization, Disabling)
  Sender: FDA-Public Use
  Company Number: FR-ELI_LILLY_AND_COMPANY-FR202106007070

PATIENT
  Sex: Female

DRUGS (10)
  1. DIAZEPAM. [Suspect]
     Active Substance: DIAZEPAM
     Indication: DEPRESSION
     Dosage: UNK UNK, UNKNOWN
     Route: 064
  2. FLUOXETINE [Suspect]
     Active Substance: FLUOXETINE HYDROCHLORIDE
     Indication: DEPRESSION
     Dosage: UNK UNK, UNKNOWN
     Route: 064
  3. ALPRAZOLAM. [Suspect]
     Active Substance: ALPRAZOLAM
     Indication: DEPRESSION
     Dosage: UNK UNK, UNKNOWN
     Route: 064
  4. FLUOXETINE [Suspect]
     Active Substance: FLUOXETINE HYDROCHLORIDE
     Indication: DEPRESSION
     Dosage: UNK UNK, UNKNOWN
     Route: 064
  5. LARGACTIL [CHLORPROMAZINE EMBONATE] [Suspect]
     Active Substance: CHLORPROMAZINE PAMOATE
     Indication: DEPRESSION
     Dosage: UNK UNK, UNKNOWN
     Route: 064
  6. LORMETAZEPAM [Suspect]
     Active Substance: LORMETAZEPAM
     Indication: DEPRESSION
     Dosage: UNK UNK, UNKNOWN
     Route: 064
  7. LARGACTIL [CHLORPROMAZINE EMBONATE] [Suspect]
     Active Substance: CHLORPROMAZINE PAMOATE
     Indication: DEPRESSION
     Dosage: UNK UNK, UNKNOWN
     Route: 064
  8. ALPRAZOLAM. [Suspect]
     Active Substance: ALPRAZOLAM
     Indication: DEPRESSION
     Dosage: UNK UNK, UNKNOWN
     Route: 064
  9. LORMETAZEPAM [Suspect]
     Active Substance: LORMETAZEPAM
     Indication: DEPRESSION
     Dosage: UNK UNK, UNKNOWN
     Route: 064
  10. DIAZEPAM. [Suspect]
     Active Substance: DIAZEPAM
     Indication: DEPRESSION
     Dosage: UNK UNK, UNKNOWN
     Route: 064

REACTIONS (4)
  - Developmental delay [Not Recovered/Not Resolved]
  - Dysphagia [Not Recovered/Not Resolved]
  - Foetal exposure during pregnancy [Recovered/Resolved]
  - Hypotonia neonatal [Not Recovered/Not Resolved]

NARRATIVE: CASE EVENT DATE: 20180627
